FAERS Safety Report 7105997-7 (Version None)
Quarter: 2010Q4

REPORT INFORMATION
  Report Type: 
  Country: None (occurrence: None)
  Receive Date: 20101116
  Receipt Date: 20101111
  Transmission Date: 20110411
  Serious: Yes (Death, Other)
  Sender: FDA-Public Use
  Company Number: US-BRISTOL-MYERS SQUIBB COMPANY-15366263

PATIENT
  Age: 77 Year
  Sex: Female

DRUGS (3)
  1. ORENCIA [Suspect]
     Indication: RHEUMATOID ARTHRITIS
     Route: 042
     Dates: start: 20060322, end: 20100914
  2. REMICADE [Suspect]
     Dates: start: 20000101, end: 20060101
  3. METHOTREXATE [Suspect]
     Dosage: FOR YEARS.

REACTIONS (3)
  - ANAEMIA [None]
  - LYMPHOMA [None]
  - RENAL FAILURE ACUTE [None]
